FAERS Safety Report 13868257 (Version 7)
Quarter: 2018Q2

REPORT INFORMATION
  Report Type: Report from Study
  Country: US (occurrence: US)
  Receive Date: 20170815
  Receipt Date: 20180523
  Transmission Date: 20180711
  Serious: Yes (Other)
  Sender: FDA-Public Use
  Company Number: PHEH2017US025133

PATIENT
  Age: 42 Year
  Sex: Male
  Weight: 104.3 kg

DRUGS (2)
  1. COSENTYX [Suspect]
     Active Substance: SECUKINUMAB
     Indication: PSORIASIS
     Dosage: 300 MG, UNK
     Route: 058
     Dates: start: 20170719
  2. COSENTYX [Suspect]
     Active Substance: SECUKINUMAB
     Indication: PSORIATIC ARTHROPATHY
     Dosage: 300 MG, Q4W
     Route: 058

REACTIONS (14)
  - Cardiac disorder [Not Recovered/Not Resolved]
  - Latent tuberculosis [Unknown]
  - Abdominal discomfort [Unknown]
  - Drug ineffective [Unknown]
  - Pyrexia [Recovered/Resolved]
  - Asthenia [Unknown]
  - Depressed mood [Unknown]
  - Psoriasis [Unknown]
  - Fatigue [Unknown]
  - Heart rate increased [Unknown]
  - Lethargy [Unknown]
  - Nasopharyngitis [Recovered/Resolved]
  - Nausea [Not Recovered/Not Resolved]
  - Influenza [Unknown]

NARRATIVE: CASE EVENT DATE: 20170719
